FAERS Safety Report 5224921-5 (Version None)
Quarter: 2007Q1

REPORT INFORMATION
  Report Type: 
  Country: None (occurrence: None)
  Receive Date: 20070126
  Receipt Date: 20070116
  Transmission Date: 20070707
  Serious: Yes (Hospitalization, Other)
  Sender: FDA-Public Use
  Company Number: GXKR2007GB00846

PATIENT
  Age: 84 Year
  Sex: Male

DRUGS (10)
  1. TRIMETHOPRIM [Suspect]
     Indication: URINARY TRACT INFECTION
     Dosage: 200 MG, BID, ORAL
     Route: 048
     Dates: start: 20061222, end: 20061228
  2. WARFARIN SODIUM [Suspect]
     Indication: ATRIAL FIBRILLATION
     Dosage: 1 DF, PRN, ORAL
     Route: 048
  3. ATENOLOL [Concomitant]
  4. CODEINE SUL TAB [Concomitant]
  5. DOCUSATE (DOCUSATE) [Concomitant]
  6. LACTULOSE [Concomitant]
  7. PERINDOPRIL ERBUMINE [Concomitant]
  8. SENNA (SENNA, SENNA ALEXANDRINA) [Concomitant]
  9. SIMVASTATIN [Concomitant]
  10. SODIUM VERSENATE (EDETATE DISODIUM) [Concomitant]

REACTIONS (4)
  - DRUG INTERACTION [None]
  - HAEMATEMESIS [None]
  - HAEMOGLOBIN DECREASED [None]
  - INTERNATIONAL NORMALISED RATIO INCREASED [None]
